FAERS Safety Report 6133576-7 (Version None)
Quarter: 2009Q1

REPORT INFORMATION
  Report Type: 
  Country: None (occurrence: None)
  Receive Date: 20090326
  Receipt Date: 20090316
  Transmission Date: 20090719
  Serious: Yes (Hospitalization)
  Sender: FDA-Public Use
  Company Number: DE-PURDUE-DEU_2009_0005101

PATIENT
  Age: 84 Year
  Sex: Male
  Weight: 82 kg

DRUGS (7)
  1. THEOPHYLLINE [Suspect]
     Indication: CHRONIC OBSTRUCTIVE PULMONARY DISEASE
     Dosage: 250 MG, BID
     Route: 048
     Dates: start: 20080819
  2. TORASEMIDE [Suspect]
     Indication: OEDEMA PERIPHERAL
     Dosage: 10 MG, DAILY
     Route: 048
     Dates: end: 20090115
  3. ALLOPURINOL [Concomitant]
  4. ISMN [Concomitant]
  5. MUCOFALK                           /00091301/ [Concomitant]
  6. PANTOZOL                           /01263202/ [Concomitant]
  7. TAMSULOSIN HCL [Concomitant]

REACTIONS (2)
  - DRUG INTERACTION [None]
  - VENOUS THROMBOSIS [None]
